FAERS Safety Report 7536935-0 (Version None)
Quarter: 2011Q2

REPORT INFORMATION
  Report Type: 
  Country: None (occurrence: None)
  Receive Date: 20110608
  Receipt Date: 20110608
  Transmission Date: 20111010
  Serious: Yes (Hospitalization)
  Sender: FDA-Public Use
  Company Number: None

PATIENT
  Sex: Male
  Weight: 106.5953 kg

DRUGS (2)
  1. CAMPATH [Suspect]
     Dosage: 30MG, QD, IV
     Route: 042
     Dates: start: 20101115
  2. CAMPATH [Suspect]
     Dosage: 30MG, QD, IV
     Route: 042
     Dates: start: 20101119

REACTIONS (7)
  - FOOT FRACTURE [None]
  - SKIN ULCER [None]
  - RENAL TUBULAR NECROSIS [None]
  - PYREXIA [None]
  - DIARRHOEA [None]
  - BLOOD CREATININE INCREASED [None]
  - OSTEOMYELITIS [None]
